FAERS Safety Report 6553994-2 (Version None)
Quarter: 2010Q1

REPORT INFORMATION
  Report Type: 
  Country: None (occurrence: None)
  Receive Date: 20100127
  Receipt Date: 20100113
  Transmission Date: 20100710
  Serious: Yes (Other)
  Sender: FDA-Public Use
  Company Number: US-ASTRAZENECA-2010SE01514

PATIENT
  Age: 46 Year
  Sex: Female

DRUGS (1)
  1. SEROQUEL [Suspect]
     Indication: BIPOLAR I DISORDER
     Route: 048
     Dates: start: 20090101

REACTIONS (8)
  - BLINDNESS [None]
  - CARDIAC DISORDER [None]
  - FALL [None]
  - GAIT DISTURBANCE [None]
  - GLAUCOMA [None]
  - PARALYSIS [None]
  - RIB FRACTURE [None]
  - SUICIDAL IDEATION [None]
